FAERS Safety Report 4734365-8 (Version None)
Quarter: 2005Q3

REPORT INFORMATION
  Report Type: 
  Country: None (occurrence: None)
  Receive Date: 20050729
  Receipt Date: 20050718
  Transmission Date: 20060218
  Serious: Yes (Hospitalization)
  Sender: FDA-Public Use
  Company Number: 2005BI010116

PATIENT
  Age: 44 Year
  Sex: Female
  Weight: 65.7716 kg

DRUGS (21)
  1. AVONEX [Suspect]
     Indication: MULTIPLE SCLEROSIS
     Dosage: 30 UG; QW; IM
     Route: 030
     Dates: start: 20020101, end: 20030101
  2. AVONEX [Suspect]
     Indication: MULTIPLE SCLEROSIS
     Dosage: 30 UG; QW; IM
     Route: 030
     Dates: start: 20030101, end: 20040203
  3. AVONEX [Suspect]
     Indication: MULTIPLE SCLEROSIS
     Dosage: 15 UG; QW; IM
     Route: 030
     Dates: start: 20040414
  4. FUROSEMIDE [Concomitant]
  5. SOMA [Concomitant]
  6. DURAGESIC-100 [Concomitant]
  7. POTASSIUM CHLORIDE [Concomitant]
  8. CRESTOR [Concomitant]
  9. ARTHROTEC [Concomitant]
  10. HYDROCODONE [Concomitant]
  11. EFFEXOR [Concomitant]
  12. SERZONE [Concomitant]
  13. PREVACID [Concomitant]
  14. ALLEGRA-D [Concomitant]
  15. VIRAMIN B12 [Concomitant]
  16. GABAPENTIN [Concomitant]
  17. PHENERGAN HCL [Concomitant]
  18. DURADRIN [Concomitant]
  19. MECLIZINE [Concomitant]
  20. HYCOSAMAINE [Concomitant]
  21. DETROL LA [Concomitant]

REACTIONS (9)
  - BACK PAIN [None]
  - DISEASE RECURRENCE [None]
  - DYSKINESIA [None]
  - HYPOAESTHESIA [None]
  - MAJOR DEPRESSION [None]
  - NEPHROLITHIASIS [None]
  - OEDEMA PERIPHERAL [None]
  - POLLAKIURIA [None]
  - URINARY TRACT INFECTION [None]
